FAERS Safety Report 14668434 (Version 1)
Quarter: 2018Q1

REPORT INFORMATION
  Report Type: Spontaneous
  Country: US (occurrence: US)
  Receive Date: 20180321
  Receipt Date: 20180321
  Transmission Date: 20180509
  Serious: Yes (Death)
  Sender: FDA-Public Use
  Company Number: None

PATIENT
  Sex: Female

DRUGS (5)
  1. VALSART/HCTZ [Concomitant]
  2. XEOMIN [Suspect]
     Active Substance: INCOBOTULINUMTOXINA
     Indication: BLEPHAROSPASM
     Dosage: ?          OTHER FREQUENCY:EVERY 91 DAYS;?
     Route: 030
     Dates: start: 20170316
  3. ASPIRIN. [Concomitant]
     Active Substance: ASPIRIN
  4. CALCIUM 600 [Concomitant]
  5. METOPROLOL TARTRATE. [Concomitant]
     Active Substance: METOPROLOL TARTRATE

REACTIONS (1)
  - Death [None]
